FAERS Safety Report 10765270 (Version 1)
Quarter: 2015Q1

REPORT INFORMATION
  Report Type: Report from Study
  Country: CA (occurrence: CA)
  Receive Date: 20150205
  Receipt Date: 20150205
  Transmission Date: 20150721
  Serious: Yes (Hospitalization)
  Sender: FDA-Public Use
  Company Number: CA-JNJFOC-20150117827

PATIENT
  Sex: Female
  Weight: 68.04 kg

DRUGS (2)
  1. REMICADE [Suspect]
     Active Substance: INFLIXIMAB
     Indication: ANKYLOSING SPONDYLITIS
     Dosage: STOP DATE WAS OCT-NOV 2014.
     Route: 042
     Dates: start: 201409, end: 2014
  2. REMICADE [Suspect]
     Active Substance: INFLIXIMAB
     Indication: ANKYLOSING SPONDYLITIS
     Dosage: STOP DATE WAS OCT-NOV 2014.
     Route: 042
     Dates: start: 200901

REACTIONS (1)
  - Oesophageal carcinoma [Unknown]
